FAERS Safety Report 22275021 (Version 1)
Quarter: 2023Q2

REPORT INFORMATION
  Report Type: Spontaneous
  Country: KR (occurrence: KR)
  Receive Date: 20230502
  Receipt Date: 20230502
  Transmission Date: 20230721
  Serious: Yes (Congenital Anomaly, Other)
  Sender: FDA-Public Use
  Company Number: KR-LAURUS LABS LIMITED-2023LAU000036

PATIENT
  Age: 2 Day
  Sex: Female
  Weight: 2.06 kg

DRUGS (1)
  1. HYDROXYCHLOROQUINE [Suspect]
     Active Substance: HYDROXYCHLOROQUINE
     Indication: Product used for unknown indication
     Dosage: 300 MILLIGRAM/ DAY
     Route: 064

REACTIONS (4)
  - Anterior chamber cleavage syndrome [Unknown]
  - Intraventricular haemorrhage [Unknown]
  - Premature baby [Unknown]
  - Foetal exposure during pregnancy [Recovered/Resolved]
